FAERS Safety Report 12309056 (Version 1)
Quarter: 2016Q2

REPORT INFORMATION
  Report Type: Spontaneous
  Country: US (occurrence: None)
  Receive Date: 20160426
  Receipt Date: 20160426
  Transmission Date: 20160815
  Serious: Yes (Death, Life-Threatening, Hospitalization, Disabling)
  Sender: FDA-Public Use
  Company Number: None

PATIENT
  Age: 84 Year
  Sex: Female
  Weight: 72.58 kg

DRUGS (3)
  1. TYLENOL [Concomitant]
     Active Substance: ACETAMINOPHEN
  2. PROLIA [Suspect]
     Active Substance: DENOSUMAB
     Indication: OSTEOPOROSIS
     Dosage: Q 6 MONTHS INJECTION
     Dates: start: 20140104, end: 20160324
  3. ZANTAC [Concomitant]
     Active Substance: RANITIDINE HYDROCHLORIDE

REACTIONS (10)
  - Purpura [None]
  - Pancytopenia [None]
  - Bone marrow disorder [None]
  - Aplastic anaemia [None]
  - Bone pain [None]
  - Arthralgia [None]
  - Petechiae [None]
  - Myocardial infarction [None]
  - Mobility decreased [None]
  - Platelet destruction increased [None]

NARRATIVE: CASE EVENT DATE: 20160220
